FAERS Safety Report 4500541-2 (Version None)
Quarter: 2004Q4

REPORT INFORMATION
  Report Type: 
  Country: None (occurrence: None)
  Receive Date: 20041109
  Receipt Date: 20041005
  Transmission Date: 20050328
  Serious: Yes (Other)
  Sender: FDA-Public Use
  Company Number: US_0411107813

PATIENT
  Age: 55 Year
  Sex: Male
  Weight: 93 kg

DRUGS (1)
  1. ZYPREXA [Suspect]
     Dosage: 10 MG
     Dates: start: 19970101, end: 19981101

REACTIONS (4)
  - CORONARY ARTERY DISEASE [None]
  - DIABETIC COMA [None]
  - ERECTILE DYSFUNCTION [None]
  - NEUROGENIC BLADDER [None]
